FAERS Safety Report 5886862-X (Version None)
Quarter: 2008Q3

REPORT INFORMATION
  Report Type: 
  Country: None (occurrence: None)
  Receive Date: 20080917
  Receipt Date: 20080910
  Transmission Date: 20090109
  Serious: Yes (Hospitalization)
  Sender: FDA-Public Use
  Company Number: JP-ROCHE-586008

PATIENT
  Age: 24 Year
  Sex: Male

DRUGS (1)
  1. ROCEPHIN [Suspect]
     Indication: ENDOCARDITIS
     Route: 041
     Dates: start: 20080730, end: 20080909

REACTIONS (1)
  - CHOLELITHIASIS [None]
